FAERS Safety Report 17148713 (Version 1)
Quarter: 2019Q4

REPORT INFORMATION
  Report Type: Spontaneous
  Country: GB (occurrence: GB)
  Receive Date: 20191213
  Receipt Date: 20191213
  Transmission Date: 20200122
  Serious: Yes (Other)
  Sender: FDA-Public Use
  Company Number: GB-TEVA-2019-GB-1149885

PATIENT
  Age: 56 Year
  Sex: Female
  Weight: 53 kg

DRUGS (5)
  1. ACICLOVIR [Concomitant]
     Active Substance: ACYCLOVIR
     Dosage: 5 DF
     Dates: start: 20180417
  2. ESTRADIOL. [Concomitant]
     Active Substance: ESTRADIOL
     Dosage: TO USE ON ALTERNATE DAYS AS PER GYNAECOLOGIST
     Dates: start: 20190409
  3. OVESTIN [Concomitant]
     Active Substance: ESTRIOL
     Dosage: APPLY AT NIGHT TWO TO THREE TIMES PER WEEK
     Dates: start: 20190409
  4. SERTRALINE [Concomitant]
     Active Substance: SERTRALINE HYDROCHLORIDE
     Dosage: 1 DF
     Dates: start: 20180814
  5. NITROFURANTOIN. [Suspect]
     Active Substance: NITROFURANTOIN
     Dosage: 200 MG
     Dates: start: 20191004, end: 20191011

REACTIONS (1)
  - Liver injury [Unknown]

NARRATIVE: CASE EVENT DATE: 20191011
